FAERS Safety Report 7348485-5 (Version None)
Quarter: 2011Q1

REPORT INFORMATION
  Report Type: 
  Country: None (occurrence: None)
  Receive Date: 20110314
  Receipt Date: 20110302
  Transmission Date: 20110831
  Serious: Yes (Hospitalization)
  Sender: FDA-Public Use
  Company Number: BR-ASTRAZENECA-2011SE11717

PATIENT
  Age: 46 Year
  Sex: Female

DRUGS (3)
  1. SEROQUEL [Suspect]
     Dosage: 92 TABLETS
     Route: 048
     Dates: start: 20110226, end: 20110226
  2. CLOXAZOLAM [Suspect]
     Dosage: 147  TABLETS
     Route: 048
     Dates: start: 20110226, end: 20110226
  3. FENOBARBITAL [Suspect]
     Dosage: 10 TABLETS
     Route: 048
     Dates: start: 20110226, end: 20110226

REACTIONS (8)
  - ESCHAR [None]
  - VOMITING [None]
  - SUICIDE ATTEMPT [None]
  - SINUS TACHYCARDIA [None]
  - OVERDOSE [None]
  - OXYGEN SATURATION DECREASED [None]
  - LOSS OF CONSCIOUSNESS [None]
  - HEART RATE INCREASED [None]
